FAERS Safety Report 9424599 (Version 2)
Quarter: 2014Q1

REPORT INFORMATION
  Report Type: Spontaneous
  Country: GB (occurrence: GB)
  Receive Date: 20130729
  Receipt Date: 20140113
  Transmission Date: 20141002
  Serious: Yes (Hospitalization)
  Sender: FDA-Public Use
  Company Number: GB-UCBSA-093052

PATIENT
  Age: 24 Year
  Sex: Male

DRUGS (6)
  1. VIMPAT [Suspect]
     Indication: EPILEPSY
     Dosage: TITRATED UP TO 50 MG BD
     Route: 048
     Dates: start: 2012
  2. VIMPAT [Suspect]
     Indication: EPILEPSY
     Dosage: TITRATED ABOVE 50MG ONCE DAILY
     Route: 048
     Dates: end: 201210
  3. CLOBAZAM [Concomitant]
     Dosage: 10MG
     Route: 048
  4. LAMOTRIGINE [Concomitant]
     Indication: EPILEPSY
     Dosage: 100MG NOON, 100MG NOCTURNAL
     Route: 048
  5. LORAZEPAM [Concomitant]
     Dosage: 0.5G WHEN NEEDED
  6. PHENOXYMETHYL PENICILLIN [Concomitant]

REACTIONS (2)
  - Intentional self-injury [Recovered/Resolved]
  - Head banging [Recovered/Resolved]
